FAERS Safety Report 5065181-8 (Version None)
Quarter: 2006Q3

REPORT INFORMATION
  Report Type: 
  Country: None (occurrence: None)
  Receive Date: 20060706
  Receipt Date: 20050819
  Transmission Date: 20061208
  Serious: Yes (Life-Threatening)
  Sender: FDA-Public Use
  Company Number: MC200500700

PATIENT
  Age: 78 Year
  Sex: Female
  Weight: 63 kg

DRUGS (8)
  1. BIVALIRUDIN(ANGIOMAX) INJECTION [Suspect]
     Dosage: SEE IMAGE
     Route: 040
     Dates: start: 20040811, end: 20040811
  2. BIVALIRUDIN(ANGIOMAX) INJECTION [Suspect]
     Dosage: SEE IMAGE
     Route: 040
     Dates: start: 20040811, end: 20040812
  3. MIDAZOLAM HCL [Suspect]
     Indication: SEDATIVE THERAPY
     Dosage: 6 MG, INTRAVENOUS
     Route: 042
     Dates: start: 20040812, end: 20040812
  4. ASPIRIN [Concomitant]
  5. PLAVIX [Concomitant]
  6. LASIX [Concomitant]
  7. POTASSIUM (POTASSIUM) [Concomitant]
  8. DARVOCET-N 100 [Concomitant]

REACTIONS (1)
  - HYPOTENSION [None]
